FAERS Safety Report 19674923 (Version 1)
Quarter: 2021Q3

REPORT INFORMATION
  Report Type: Spontaneous
  Country: US (occurrence: US)
  Receive Date: 20210809
  Receipt Date: 20210809
  Transmission Date: 20211014
  Serious: Yes (Other)
  Sender: FDA-Public Use
  Company Number: None

PATIENT
  Age: 81 Year
  Sex: Female
  Weight: 64.22 kg

DRUGS (14)
  1. LEVOTHYROXINE. [Concomitant]
     Active Substance: LEVOTHYROXINE
  2. AMLODIPINE [Concomitant]
     Active Substance: AMLODIPINE BESYLATE
  3. ELIQUIS [Concomitant]
     Active Substance: APIXABAN
  4. METFORMIN [Concomitant]
     Active Substance: METFORMIN HYDROCHLORIDE
  5. TYLENOL EXTRA STRENGTH [Concomitant]
     Active Substance: ACETAMINOPHEN
  6. METOPROLOL. [Concomitant]
     Active Substance: METOPROLOL
  7. XANAX [Concomitant]
     Active Substance: ALPRAZOLAM
  8. TESSALON [Concomitant]
     Active Substance: BENZONATATE
  9. MEGNESIUM OXIDE [Concomitant]
  10. NORCO [Concomitant]
     Active Substance: ACETAMINOPHEN\HYDROCODONE BITARTRATE
  11. PAXIL [Concomitant]
     Active Substance: PAROXETINE HYDROCHLORIDE
  12. TABRECTA [Suspect]
     Active Substance: CAPMATINIB
     Indication: BREAST CANCER
     Route: 048
     Dates: start: 20210519
  13. DOXYCYCLINE. [Concomitant]
     Active Substance: DOXYCYCLINE
  14. VITAMIN D [Concomitant]
     Active Substance: VITAMIN D NOS

REACTIONS (1)
  - Panic attack [None]

NARRATIVE: CASE EVENT DATE: 20210808
